FAERS Safety Report 24734134 (Version 1)
Quarter: 2024Q4

REPORT INFORMATION
  Report Type: Spontaneous
  Country: US (occurrence: US)
  Receive Date: 20241214
  Receipt Date: 20241214
  Transmission Date: 20250115
  Serious: No
  Sender: ALKEM
  Company Number: US-ALKEM LABORATORIES LIMITED-US-ALKEM-2024-19765

PATIENT

DRUGS (6)
  1. MYCOPHENOLATE MOFETIL [Suspect]
     Active Substance: MYCOPHENOLATE MOFETIL
     Indication: Immunosuppressant drug therapy
     Dosage: 1 GRAM, BID (UP TO 12 HOURS PREOPERATIVELY OR BEFORE REVASCULARIZATION)
     Route: 065
  2. TACROLIMUS [Suspect]
     Active Substance: TACROLIMUS
     Indication: Immunosuppressant drug therapy
     Dosage: 0.1 MILLIGRAM/KILOGRAM, QD (DIVIDED  AS TWO 0.05MG/KG/D EVERY 12H; TARGET TROUGH LEVEL OF 4 TO 11 NG
     Route: 048
  3. BLESELUMAB [Suspect]
     Active Substance: BLESELUMAB
     Indication: Focal segmental glomerulosclerosis
     Dosage: 200 MILLIGRAM (INTRAOPERATIVELY BEFORE REVASCULARIZATION) (ADMINISTERED OVER 30 MINUTE) (ON DAYS 0,
     Route: 042
  4. BLESELUMAB [Suspect]
     Active Substance: BLESELUMAB
     Indication: Immunosuppressant drug therapy
  5. BASILIXIMAB [Suspect]
     Active Substance: BASILIXIMAB
     Indication: Immunosuppressant drug therapy
     Dosage: 20 MILLIGRAM (BOLUS) (INTRAOPERATIVELY BEFORE REVASCULARIZATION) (FIRST DOSE)
     Route: 065
  6. BASILIXIMAB [Suspect]
     Active Substance: BASILIXIMAB
     Dosage: UNK, 2ND DOSE (WITHIN 3 TO 5 DAYS POST-TRANSPLANT)
     Route: 065

REACTIONS (2)
  - Abdominal pain [Unknown]
  - Tremor [Unknown]
